FAERS Safety Report 6081427-1 (Version None)
Quarter: 2009Q1

REPORT INFORMATION
  Report Type: 
  Country: None (occurrence: None)
  Receive Date: 20090218
  Receipt Date: 20090216
  Transmission Date: 20090719
  Serious: Yes (Other)
  Sender: FDA-Public Use
  Company Number: US-ASTRAZENECA-2009UW02911

PATIENT
  Age: 652 Month
  Sex: Male

DRUGS (2)
  1. SYMBICORT [Suspect]
     Dosage: APPROXIMATELY 5 - 6 TIMES A DAY
     Route: 055
     Dates: start: 20080601
  2. ALBUTEROL [Concomitant]

REACTIONS (3)
  - LARYNGITIS [None]
  - MYOCARDIAL INFARCTION [None]
  - PNEUMONIA [None]
